FAERS Safety Report 8139367 (Version 2)
Quarter: 2012Q4

REPORT INFORMATION
  Report Type: 
  Country: TR (occurrence: TR)
  Receive Date: 20110916
  Receipt Date: 20120920
  Transmission Date: 20130627
  Serious: Yes (Other)
  Sender: FDA-Public Use
  Company Number: TR-PFIZER INC-2011215075

PATIENT
  Age: 61 Year
  Sex: Male

DRUGS (4)
  1. LYRICA [Suspect]
     Dosage: 150 mg, 2x/day
     Route: 048
  2. LYRICA [Suspect]
     Dosage: 150 mg, 1x/day
  3. INSULIN [Concomitant]
  4. VITAMINS NOS [Concomitant]

REACTIONS (3)
  - Breast discharge [Recovered/Resolved]
  - Wound [Recovering/Resolving]
  - Pruritus [Not Recovered/Not Resolved]
